FAERS Safety Report 6127010-0 (Version None)
Quarter: 2009Q1

REPORT INFORMATION
  Report Type: 
  Country: None (occurrence: None)
  Receive Date: 20090320
  Receipt Date: 20090306
  Transmission Date: 20090719
  Serious: No
  Sender: FDA-Public Use
  Company Number: US-ABBOTT-08P-163-0488442-00

PATIENT
  Sex: Female

DRUGS (9)
  1. ERYPED [Suspect]
     Indication: IMPAIRED GASTRIC EMPTYING
     Dosage: 200MG/5 ML, 8 TO 10 CC BEFORE EACH MEAL AND AT HS
     Route: 048
     Dates: start: 20060101
  2. IMITREX [Concomitant]
     Indication: MIGRAINE
  3. STADOL [Concomitant]
     Indication: MIGRAINE
     Route: 045
  4. XANAX [Concomitant]
     Indication: DRUG USE FOR UNKNOWN INDICATION
  5. PROTONIX [Concomitant]
     Indication: BARRETT'S OESOPHAGUS
  6. SYNTHROID [Concomitant]
     Indication: HYPOTHYROIDISM
  7. VIOKASE 16 [Concomitant]
     Indication: PANCREATITIS
  8. ESTRADIOL [Concomitant]
     Indication: MIGRAINE PROPHYLAXIS
  9. ELAVIL [Concomitant]
     Indication: MIGRAINE

REACTIONS (1)
  - DRUG INEFFECTIVE [None]
